FAERS Safety Report 8602151-4 (Version None)
Quarter: 2012Q3

REPORT INFORMATION
  Report Type: 
  Country: None (occurrence: None)
  Receive Date: 20120817
  Receipt Date: 20120810
  Transmission Date: 20120928
  Serious: Yes (Hospitalization)
  Sender: FDA-Public Use
  Company Number: FR-SANOFI-AVENTIS-2012SA057383

PATIENT
  Age: 66 Year
  Sex: Female

DRUGS (21)
  1. LASIX [Suspect]
     Route: 042
     Dates: start: 20120514, end: 20120515
  2. HYDREA [Suspect]
     Indication: DEEP VEIN THROMBOSIS
     Dosage: 500 MG DAILY EVERY OTHER DAYS AND 1000 MG DAILY EVERY OTHER DAY
     Route: 048
     Dates: end: 20120501
  3. HUMALOG [Suspect]
     Route: 058
     Dates: start: 20120512, end: 20120517
  4. ACTONEL [Concomitant]
  5. AUGMENTIN '500' [Concomitant]
  6. CLAFORAN [Suspect]
     Indication: PNEUMONIA LEGIONELLA
     Dosage: POWDER AND SOLVANT FOR INJECTION SOLUTION
     Route: 042
     Dates: start: 20120512, end: 20120514
  7. PROPRANOLOL [Concomitant]
  8. AUGMENTIN '500' [Concomitant]
     Indication: COUGH
  9. ASPIRIN [Concomitant]
  10. MICARDIS [Concomitant]
  11. CLARITHROMYCIN [Concomitant]
     Indication: COUGH
     Dates: start: 20120501
  12. METHOTREXATE SODIUM [Suspect]
     Route: 058
  13. CLARITHROMYCIN [Concomitant]
     Dates: start: 20120501
  14. PREDNISONE TAB [Concomitant]
     Indication: RHEUMATOID ARTHRITIS
     Route: 048
  15. AMITRIPTYLINE HYDROCHLORIDE [Concomitant]
  16. TERBINAFINE HCL [Concomitant]
  17. ALDACTAZINE [Concomitant]
  18. NEXIUM [Concomitant]
  19. XYZAL [Concomitant]
  20. ATORVASTATIN [Concomitant]
  21. LORAZEPAM [Concomitant]

REACTIONS (1)
  - PANCYTOPENIA [None]
